FAERS Safety Report 8847674 (Version 2)
Quarter: 2012Q4

REPORT INFORMATION
  Report Type: 
  Country: AU (occurrence: AU)
  Receive Date: 20121018
  Receipt Date: 20121019
  Transmission Date: 20130627
  Serious: Yes (Other)
  Sender: FDA-Public Use
  Company Number: AU-ASTRAZENECA-2012SE49466

PATIENT
  Sex: Female

DRUGS (1)
  1. PULMICORT TURBUHALER [Suspect]
     Route: 055

REACTIONS (1)
  - Asthma [Unknown]
